FAERS Safety Report 19080920 (Version 1)
Quarter: 2021Q2

REPORT INFORMATION
  Report Type: Spontaneous
  Country: US (occurrence: US)
  Receive Date: 20210401
  Receipt Date: 20210401
  Transmission Date: 20210717
  Serious: No
  Sender: FDA-Public Use
  Company Number: US-009507513-2103USA003595

PATIENT
  Age: 18 Year
  Sex: Female

DRUGS (1)
  1. KEYTRUDA [Suspect]
     Active Substance: PEMBROLIZUMAB
     Indication: INFLAMMATORY MYOFIBROBLASTIC TUMOUR
     Dosage: UNKNOWN

REACTIONS (1)
  - Product use in unapproved indication [Unknown]
